FAERS Safety Report 5704683-5 (Version None)
Quarter: 2008Q2

REPORT INFORMATION
  Report Type: 
  Country: None (occurrence: None)
  Receive Date: 20080414
  Receipt Date: 20080404
  Transmission Date: 20081010
  Serious: Yes (Hospitalization, Other)
  Sender: FDA-Public Use
  Company Number: SE-ABBOTT-08P-150-0445562-00

PATIENT
  Sex: Female

DRUGS (5)
  1. ERGENYL TABLETS [Suspect]
     Indication: EPILEPSY
     Route: 048
     Dates: start: 19960101, end: 20070507
  2. LAMOTRIGINE [Suspect]
     Indication: EPILEPSY
     Route: 048
  3. LAMOTRIGINE [Suspect]
     Route: 048
     Dates: start: 19990101, end: 20070507
  4. CITALOPRAM HYDROBROMIDE [Concomitant]
     Indication: DRUG USE FOR UNKNOWN INDICATION
     Dates: end: 20070501
  5. OXAZEPAM [Concomitant]
     Indication: DRUG USE FOR UNKNOWN INDICATION
     Dates: end: 20070501

REACTIONS (11)
  - ACTIVITIES OF DAILY LIVING IMPAIRED [None]
  - BALANCE DISORDER [None]
  - COGNITIVE DISORDER [None]
  - CONVULSION [None]
  - DEMENTIA [None]
  - HYPOAESTHESIA [None]
  - MEMORY IMPAIRMENT [None]
  - SYNCOPE [None]
  - UPPER RESPIRATORY TRACT INFECTION [None]
  - URINARY TRACT INFECTION [None]
  - WHEELCHAIR USER [None]
